FAERS Safety Report 9749905 (Version 2)
Quarter: 2013Q4

REPORT INFORMATION
  Report Type: Report from Study
  Country: US (occurrence: US)
  Receive Date: 20131212
  Receipt Date: 20131212
  Transmission Date: 20140711
  Serious: Yes (Congenital Anomaly)
  Sender: FDA-Public Use
  Company Number: US-B.I. PHARMACEUTICALS,INC./RIDGEFIELD-2007-BP-23630BP

PATIENT
  Age: 0 Year
  Sex: Male
  Weight: 3.76 kg

DRUGS (2)
  1. VIRAMUNE TABLETS [Suspect]
     Indication: HIV INFECTION
     Dosage: 400 MG
     Route: 064
  2. ZIDOVUDINE W/LAMIVUDINE [Suspect]
     Indication: HIV INFECTION
     Dosage: 2 ANZ
     Route: 064

REACTIONS (2)
  - Pyelocaliectasis [Unknown]
  - Alpha 1 foetoprotein abnormal [Unknown]
